FAERS Safety Report 4322411-5 (Version None)
Quarter: 2004Q1

REPORT INFORMATION
  Report Type: 
  Country: None (occurrence: None)
  Receive Date: 20040319
  Receipt Date: 20040309
  Transmission Date: 20041129
  Serious: Yes (Hospitalization)
  Sender: FDA-Public Use
  Company Number: 2004012677

PATIENT
  Age: 26 Month
  Sex: Female

DRUGS (5)
  1. UNASYN [Suspect]
     Dosage: 2.25 GRAM (TID), INTRAVENOUS
     Route: 042
     Dates: start: 20021118, end: 20021121
  2. PRANOPROFEN (PRANOPROFEN) [Suspect]
     Dosage: 135 MG (TID), ORAL
     Route: 048
     Dates: start: 20021118, end: 20021122
  3. CARBOSISTEINE (CARBOCISTEINE) [Concomitant]
  4. TULOBUTEROL HYDROCHLORIDE (TULOBUTEROL HYDROCHLORIDE) [Concomitant]
  5. TIPEPIDINE HIBENZATE (TIPEPIDINE HIBENZATE) [Concomitant]

REACTIONS (3)
  - ALANINE AMINOTRANSFERASE INCREASED [None]
  - ASPARTATE AMINOTRANSFERASE INCREASED [None]
  - HEPATIC FUNCTION ABNORMAL [None]
